FAERS Safety Report 9411570 (Version 1)
Quarter: 2013Q3

REPORT INFORMATION
  Report Type: Spontaneous
  Country: US (occurrence: None)
  Receive Date: 20130718
  Receipt Date: 20130718
  Transmission Date: 20140515
  Serious: No
  Sender: FDA-Public Use
  Company Number: None

PATIENT
  Age: 44 Year
  Sex: Female
  Weight: 45.36 kg

DRUGS (8)
  1. LEVOFLOXACIN [Suspect]
     Indication: HELICOBACTER INFECTION
     Dosage: 500 MI. 2 PILLS A DAY TWICE DAILY BY MOUTH
     Route: 048
     Dates: start: 20130508, end: 20130510
  2. PROPRANDOL [Concomitant]
  3. LISINOPRIL [Concomitant]
  4. MULTI-VITAMIN [Concomitant]
  5. VIT D [Concomitant]
  6. VIT C [Concomitant]
  7. FISH OIL [Concomitant]
  8. MAGNESIUM TUMS [Concomitant]

REACTIONS (4)
  - Abasia [None]
  - Tendon disorder [None]
  - Hypoaesthesia [None]
  - Localised infection [None]
